FAERS Safety Report 23214279 (Version 1)
Quarter: 2023Q4

REPORT INFORMATION
  Report Type: Spontaneous
  Country: US (occurrence: US)
  Receive Date: 20231121
  Receipt Date: 20231121
  Transmission Date: 20240110
  Serious: No
  Sender: FDA-Public Use
  Company Number: US-PFIZER INC-202300384906

PATIENT
  Sex: Female

DRUGS (1)
  1. IBRANCE [Suspect]
     Active Substance: PALBOCICLIB
     Dosage: 125 MG CAPS - 1 CAPSULE ONCE DAILY ON DAYS 1 THROUGH 18 EVERY 30 DAYS (18 DAYS ON, 12 DAYS OFF)

REACTIONS (1)
  - Pain [Unknown]
